FAERS Safety Report 13910622 (Version 1)
Quarter: 2017Q3

REPORT INFORMATION
  Report Type: Spontaneous
  Country: US (occurrence: US)
  Receive Date: 20170826
  Receipt Date: 20170826
  Transmission Date: 20171127
  Serious: No
  Sender: FDA-Public Use
  Company Number: None

PATIENT
  Age: 16 Year
  Sex: Female
  Weight: 62.55 kg

DRUGS (2)
  1. KETACONEZOLE SHAMPOO [Concomitant]
  2. EPIDUO FORTE [Suspect]
     Active Substance: ADAPALENE\BENZOYL PEROXIDE
     Indication: ACNE
     Dosage: ?          QUANTITY:1 BOTTLE/PUMP;?
     Route: 061
     Dates: start: 20170823, end: 20170826

REACTIONS (6)
  - Application site reaction [None]
  - Application site dryness [None]
  - Application site pain [None]
  - Application site erythema [None]
  - Application site inflammation [None]
  - Application site exfoliation [None]

NARRATIVE: CASE EVENT DATE: 20170823
